FAERS Safety Report 24378452 (Version 1)
Quarter: 2024Q3

REPORT INFORMATION
  Report Type: Spontaneous
  Country: US (occurrence: US)
  Receive Date: 20240930
  Receipt Date: 20240930
  Transmission Date: 20241016
  Serious: No
  Sender: ABBVIE
  Company Number: US-ABBVIE-5937694

PATIENT
  Age: 82 Year
  Sex: Female
  Weight: 63 kg

DRUGS (7)
  1. SKYRIZI [Suspect]
     Active Substance: RISANKIZUMAB-RZAA
     Indication: Crohn^s disease
     Route: 058
     Dates: start: 202401
  2. ARMOUR THYROID [Concomitant]
     Active Substance: THYROID, PORCINE
     Indication: Hypothyroidism
  3. ASPIRIN [Concomitant]
     Active Substance: ASPIRIN
     Indication: Blood disorder
  4. PRAVASTATIN [Concomitant]
     Active Substance: PRAVASTATIN
     Indication: Cerebrovascular accident
     Dosage: 40 MILLIGRAM
  5. AJMALINE [Concomitant]
     Active Substance: AJMALINE
     Indication: Ventricular tachycardia
     Dosage: 180 MILLIGRAM
  6. DILTIAZEM [Suspect]
     Active Substance: DILTIAZEM
     Indication: Product used for unknown indication
     Route: 042
  7. FLECAINIDE [Concomitant]
     Active Substance: FLECAINIDE
     Indication: Ventricular tachycardia

REACTIONS (9)
  - Pain in extremity [Not Recovered/Not Resolved]
  - Muscular weakness [Not Recovered/Not Resolved]
  - Calcinosis [Not Recovered/Not Resolved]
  - Palpitations [Recovered/Resolved]
  - Neck pain [Not Recovered/Not Resolved]
  - Myalgia [Unknown]
  - Tendon disorder [Unknown]
  - Muscle disorder [Unknown]
  - Adverse drug reaction [Unknown]

NARRATIVE: CASE EVENT DATE: 20240101
